FAERS Safety Report 11920037 (Version 7)
Quarter: 2017Q1

REPORT INFORMATION
  Report Type: Spontaneous
  Country: DK (occurrence: DK)
  Receive Date: 20160115
  Receipt Date: 20170215
  Transmission Date: 20170428
  Serious: Yes (Other)
  Sender: FDA-Public Use
  Company Number: DK-PFIZER INC-2016009273

PATIENT
  Age: 25 Year
  Sex: Female

DRUGS (5)
  1. ONCOVIN [Suspect]
     Active Substance: VINCRISTINE SULFATE
     Indication: HODGKIN^S DISEASE
     Dosage: 1.5 MG/M2, 2 SERIES OF COPP AND 2 SERIES OF OPPA
     Route: 042
     Dates: start: 20050310, end: 20050725
  2. NATULAN ^SIGMA-TAU^ [Suspect]
     Active Substance: PROCARBAZINE HYDROCHLORIDE
     Indication: HODGKIN^S DISEASE
     Dosage: 100 MG/M2, 2 SERIES OF COPP AND 2 SERIES OF OPPA
     Route: 048
     Dates: start: 20050310, end: 20050725
  3. SENDOXAN [Suspect]
     Active Substance: CYCLOPHOSPHAMIDE
     Indication: HODGKIN^S DISEASE
     Dosage: 500 MG/M2, 2 SERIES OF COPP
     Route: 042
     Dates: start: 20050310, end: 20050725
  4. PREDNISOLON ^DAK^ [Suspect]
     Active Substance: PREDNISOLONE
     Indication: HODGKIN^S DISEASE
     Dosage: 2 SERIES OF COPP 40 MG/M2/DAY AND 2 SERIES OF OPPA 60 MG/M2/DAY
     Route: 048
     Dates: start: 20050310, end: 20050725
  5. ADRIAMYCIN [Suspect]
     Active Substance: DOXORUBICIN HYDROCHLORIDE
     Indication: HODGKIN^S DISEASE
     Dosage: 40 MG/M2, 2 SERIES OF OPPA
     Route: 042
     Dates: start: 20050310, end: 20050725

REACTIONS (5)
  - Joint destruction [Not Recovered/Not Resolved]
  - Bone infarction [Not Recovered/Not Resolved]
  - Arthralgia [Not Recovered/Not Resolved]
  - Bone erosion [Recovered/Resolved]
  - Synovitis [Recovered/Resolved]

NARRATIVE: CASE EVENT DATE: 2013
